FAERS Safety Report 21619209 (Version 1)
Quarter: 2022Q4

REPORT INFORMATION
  Report Type: Report from Study
  Country: US (occurrence: US)
  Receive Date: 20221120
  Receipt Date: 20221120
  Transmission Date: 20230113
  Serious: Yes (Other)
  Sender: FDA-Public Use
  Company Number: US-ABBVIE-4207100

PATIENT
  Sex: Female

DRUGS (1)
  1. HUMIRA [Suspect]
     Active Substance: ADALIMUMAB
     Indication: Rheumatoid arthritis
     Route: 058

REACTIONS (8)
  - Neoplasm malignant [Unknown]
  - Diabetes mellitus [Recovering/Resolving]
  - Heart rate irregular [Unknown]
  - Needle issue [Unknown]
  - Injection site pain [Unknown]
  - Gout [Recovering/Resolving]
  - Injection site injury [Unknown]
  - Atrial fibrillation [Unknown]
